FAERS Safety Report 8409508 (Version 3)
Quarter: 2013Q4

REPORT INFORMATION
  Report Type: Spontaneous
  Country: US (occurrence: US)
  Receive Date: 20120216
  Receipt Date: 20131226
  Transmission Date: 20140711
  Serious: Yes (Death, Hospitalization, Other)
  Sender: FDA-Public Use
  Company Number: US-ACTELION-A-US2012-60987

PATIENT
  Age: 64 Year
  Sex: Female

DRUGS (11)
  1. TRACLEER [Suspect]
     Indication: PULMONARY ARTERIAL HYPERTENSION
     Dosage: 62.5 MG, BID
     Route: 048
     Dates: start: 20110429, end: 201105
  2. TRACLEER [Suspect]
     Dosage: 125 MG, BID
     Route: 048
     Dates: start: 201105
  3. DIGOXIN [Concomitant]
     Dosage: 125 MCG QOD
  4. OXYGEN [Concomitant]
  5. BUMETANIDE [Concomitant]
     Dosage: 1 MG
  6. FLOLAN [Concomitant]
     Dosage: 1.5 MG CONTINUOUS
  7. METOLAZONE [Concomitant]
     Dosage: 2.5 MG TWICE/WK
  8. PRILOSEC [Concomitant]
     Dosage: 20 MG QD
  9. MICRO-K [Concomitant]
  10. SPIRONOLACTONE [Concomitant]
     Dosage: 25MG TABS II BID
  11. REVATIO [Concomitant]

REACTIONS (5)
  - Right ventricular failure [Fatal]
  - Pulmonary arterial hypertension [Fatal]
  - Pulmonary embolism [Recovered/Resolved with Sequelae]
  - Cardio-respiratory arrest [Recovered/Resolved]
  - Fluid overload [Recovered/Resolved with Sequelae]
